FAERS Safety Report 11312180 (Version 1)
Quarter: 2015Q3

REPORT INFORMATION
  Report Type: Report from Study
  Country: CA (occurrence: CA)
  Receive Date: 20150727
  Receipt Date: 20150727
  Transmission Date: 20151125
  Serious: Yes (Hospitalization)
  Sender: FDA-Public Use
  Company Number: CA-TOLMAR, INC.-2015CA006687

PATIENT

DRUGS (1)
  1. ELIGARD [Suspect]
     Active Substance: LEUPROLIDE ACETATE
     Indication: PROSTATE CANCER
     Dosage: 45 MG, SIX MONTH DOSE
     Route: 065
     Dates: start: 200905

REACTIONS (3)
  - Mobility decreased [Not Recovered/Not Resolved]
  - Sudden visual loss [Not Recovered/Not Resolved]
  - Arrhythmia [Not Recovered/Not Resolved]
